FAERS Safety Report 9033106 (Version 1)
Quarter: 2013Q1

REPORT INFORMATION
  Report Type: Spontaneous
  Country: US (occurrence: US)
  Receive Date: 20130128
  Receipt Date: 20130128
  Transmission Date: 20140127
  Serious: No
  Sender: FDA-Public Use
  Company Number: US-PFIZER INC-2013028355

PATIENT
  Sex: 0

DRUGS (1)
  1. NEOMYCIN SULFATE [Suspect]
     Dosage: UNK
     Route: 061

REACTIONS (3)
  - Skin reaction [Unknown]
  - Skin discolouration [Unknown]
  - Skin exfoliation [Unknown]
